FAERS Safety Report 18703773 (Version 4)
Quarter: 2021Q1

REPORT INFORMATION
  Report Type: Report from Study
  Country: AU (occurrence: AU)
  Receive Date: 20210105
  Receipt Date: 20210203
  Transmission Date: 20210419
  Serious: Yes (Hospitalization)
  Sender: FDA-Public Use
  Company Number: AU-EISAI MEDICAL RESEARCH-EC-2020-085320

PATIENT
  Age: 66 Year
  Sex: Female
  Weight: 101.9 kg

DRUGS (29)
  1. LANTUS [Concomitant]
     Active Substance: INSULIN GLARGINE
     Dates: start: 201904
  2. MIZART [Concomitant]
     Active Substance: TELMISARTAN
     Dates: start: 20191204
  3. PEMBROLIZUMAB. [Suspect]
     Active Substance: PEMBROLIZUMAB
     Indication: OVARIAN CANCER
     Route: 041
     Dates: start: 20191029, end: 20201009
  4. PEMBROLIZUMAB. [Suspect]
     Active Substance: PEMBROLIZUMAB
     Route: 041
     Dates: start: 20201218, end: 20201218
  5. MAGNESIUM (UNSPECIFIED) [Concomitant]
     Active Substance: MAGNESIUM
     Dates: start: 201601
  6. NESINA [Concomitant]
     Active Substance: ALOGLIPTIN BENZOATE
     Dates: start: 20200825
  7. BIOTENE NOS [Concomitant]
     Active Substance: CETYLPYRIDINIUM CHLORIDE OR SODIUM FLUORIDE OR SODIUM MONOFLUOROPHOSPHATE OR GLUCOSE OXIDASE\LACTOFERRIN\LACTOPEROXIDASE BOVINE\LYSOZYME
     Dates: start: 20191112
  8. XYLOCAINE [Concomitant]
     Active Substance: LIDOCAINE HYDROCHLORIDE
     Dosage: RINSE
     Dates: start: 20200211
  9. LENVATINIB [Suspect]
     Active Substance: LENVATINIB
     Route: 048
     Dates: start: 20201218, end: 20201227
  10. PEMBROLIZUMAB. [Suspect]
     Active Substance: PEMBROLIZUMAB
     Route: 041
     Dates: start: 20201120, end: 20201120
  11. VITAMIN D (UNSPECIFIED) [Concomitant]
     Active Substance: VITAMIN D NOS
     Dates: start: 201001
  12. BLACKMORES MACU VISION [Concomitant]
     Active Substance: MINERALS\VITAMINS
     Dates: start: 20200211
  13. STEMZINE [Concomitant]
     Dates: start: 20200325
  14. MINAX [Concomitant]
     Active Substance: METOPROLOL
     Dates: start: 20200918
  15. LEVOTHYROXINE SODIUM. [Concomitant]
     Active Substance: LEVOTHYROXINE SODIUM
     Dates: start: 20200619
  16. FUNGILIN [Concomitant]
     Active Substance: AMPHOTERICIN B
     Dates: start: 20201002
  17. LIPITOR [Concomitant]
     Active Substance: ATORVASTATIN CALCIUM
     Dates: start: 200901
  18. LENVATINIB [Suspect]
     Active Substance: LENVATINIB
     Route: 048
     Dates: start: 20201120, end: 20201210
  19. CYMBALTA [Concomitant]
     Active Substance: DULOXETINE HYDROCHLORIDE
     Dates: start: 201301
  20. NEXIUM [Concomitant]
     Active Substance: ESOMEPRAZOLE MAGNESIUM
     Dates: start: 20200125
  21. GASTROSTOP [Concomitant]
     Dates: start: 20200325
  22. SODIUM (UNSPECIFIED) [Concomitant]
     Dates: start: 20200317
  23. LENVATINIB [Suspect]
     Active Substance: LENVATINIB
     Indication: OVARIAN CANCER
     Dosage: STARTING DOSE AT 20 MG, FLUCTUATED DOSAGE
     Route: 048
     Dates: start: 20191029, end: 20201029
  24. HIPREX [Concomitant]
     Active Substance: METHENAMINE HIPPURATE
     Dates: start: 201910
  25. PANAMAX (PARACETAMOL) [Concomitant]
     Active Substance: ACETAMINOPHEN
     Dates: start: 201910
  26. BONJELA [Concomitant]
     Active Substance: CETALKONIUM CHLORIDE\CHOLINE SALICYLATE\MENTHOL
     Dates: start: 20200121
  27. MOVICOL [Concomitant]
     Active Substance: POLYETHYLENE GLYCOL 3350\POTASSIUM CHLORIDE\SODIUM BICARBONATE\SODIUM CHLORIDE
     Dates: start: 20200204
  28. ONDANSETRON [Concomitant]
     Active Substance: ONDANSETRON
     Dates: start: 20200407
  29. HYDRALYTE [Concomitant]
     Dates: start: 20200408

REACTIONS (2)
  - Change of bowel habit [Recovering/Resolving]
  - Hyponatraemia [Recovered/Resolved]

NARRATIVE: CASE EVENT DATE: 20201211
